FAERS Safety Report 23570821 (Version 1)
Quarter: 2024Q1

REPORT INFORMATION
  Report Type: Spontaneous
  Country: US (occurrence: None)
  Receive Date: 20240226
  Receipt Date: 20240226
  Transmission Date: 20240409
  Serious: Yes (Hospitalization)
  Sender: FDA-Public Use
  Company Number: None

PATIENT
  Age: 64 Year
  Sex: Female

DRUGS (1)
  1. AIMOVIG [Suspect]
     Active Substance: ERENUMAB-AOOE
     Indication: Migraine
     Dosage: 140 MG/ML ONCE A MONTH SUBCUTANEOUS?
     Route: 058
     Dates: start: 20181025

REACTIONS (1)
  - Spinal operation [None]

NARRATIVE: CASE EVENT DATE: 20240127
